FAERS Safety Report 9996707 (Version 1)
Quarter: 2014Q1

REPORT INFORMATION
  Report Type: Spontaneous
  Country: US (occurrence: None)
  Receive Date: 20140228
  Receipt Date: 20140228
  Transmission Date: 20141002
  Serious: Yes (Other)
  Sender: FDA-Public Use
  Company Number: 20130737

PATIENT
  Age: 27 Year
  Sex: Female

DRUGS (1)
  1. INJECTAFER [Suspect]
     Indication: PRODUCT USED FOR UNKNOWN INDICATION
     Route: 042

REACTIONS (5)
  - Pruritus [None]
  - Dyspnoea [None]
  - Chest discomfort [None]
  - Anxiety [None]
  - Weight bearing difficulty [None]
